FAERS Safety Report 16755519 (Version 1)
Quarter: 2019Q3

REPORT INFORMATION
  Report Type: Spontaneous
  Country: US (occurrence: US)
  Receive Date: 20190829
  Receipt Date: 20190829
  Transmission Date: 20191005
  Serious: No
  Sender: FDA-Public Use
  Company Number: US-GILEAD-2019-0425585

PATIENT
  Sex: Male

DRUGS (12)
  1. BIKTARVY [Suspect]
     Active Substance: BICTEGRAVIR SODIUM\EMTRICITABINE\TENOFOVIR ALAFENAMIDE FUMARATE
     Indication: OFF LABEL USE
     Dosage: PRESCRIBED BIKTARVY FOR 28 DAYS
     Route: 065
     Dates: start: 20190826
  2. LYRICA [Concomitant]
     Active Substance: PREGABALIN
  3. HYDROCHLOROTHIAZIDE. [Concomitant]
     Active Substance: HYDROCHLOROTHIAZIDE
  4. TAMSULOSIN [Concomitant]
     Active Substance: TAMSULOSIN
  5. FINASTERIDE. [Concomitant]
     Active Substance: FINASTERIDE
  6. LANSOPRAZOLE. [Concomitant]
     Active Substance: LANSOPRAZOLE
  7. CALCIUM [Concomitant]
     Active Substance: CALCIUM
  8. VITAMIN D NOS [Concomitant]
     Active Substance: VITAMIN D NOS
  9. AMLODIPINE [Concomitant]
     Active Substance: AMLODIPINE BESYLATE
  10. DULOXETINE. [Concomitant]
     Active Substance: DULOXETINE
  11. CENTRUM PLUS [Concomitant]
     Active Substance: VITAMINS
  12. FISH OIL [Concomitant]
     Active Substance: FISH OIL
     Dosage: UNK

REACTIONS (1)
  - Off label use [Not Recovered/Not Resolved]

NARRATIVE: CASE EVENT DATE: 20190826
